FAERS Safety Report 4658946-5 (Version None)
Quarter: 2005Q2

REPORT INFORMATION
  Report Type: 
  Country: None (occurrence: None)
  Receive Date: 20050509
  Receipt Date: 20050419
  Transmission Date: 20051028
  Serious: Yes (Life-Threatening, Hospitalization)
  Sender: FDA-Public Use
  Company Number: EWC041241633

PATIENT
  Sex: Male

DRUGS (3)
  1. OLANZAPINE [Suspect]
     Indication: SCHIZOPHRENIA
     Dosage: 30 MG/1 DAY
     Dates: start: 20040601, end: 20041127
  2. NOZINAN (LEVOMEPROMAZINE) [Concomitant]
  3. BIPERIDEN HYDROCHLORIDE TAB [Concomitant]

REACTIONS (6)
  - ABDOMINAL PAIN [None]
  - DRUG INTERACTION [None]
  - GASTROINTESTINAL NECROSIS [None]
  - MEGACOLON [None]
  - RESPIRATORY ARREST [None]
  - VOMITING [None]
